FAERS Safety Report 20529734 (Version 7)
Quarter: 2022Q3

REPORT INFORMATION
  Report Type: Report from Study
  Country: GB (occurrence: GB)
  Receive Date: 20220301
  Receipt Date: 20220713
  Transmission Date: 20221027
  Serious: Yes (Hospitalization, Other)
  Sender: FDA-Public Use
  Company Number: GB-CELLTRION INC.-2022GB002216

PATIENT

DRUGS (138)
  1. TRASTUZUMAB [Suspect]
     Active Substance: TRASTUZUMAB
     Indication: Breast cancer metastatic
     Dosage: 567 MG, QD (LOADING DOSE); IN TOTAL
     Route: 041
     Dates: start: 20150616, end: 20150616
  2. TRASTUZUMAB [Suspect]
     Active Substance: TRASTUZUMAB
     Indication: Breast cancer metastatic
     Dosage: 420 MG, TIW (MAINTAINANCE DOSE)
     Route: 041
     Dates: start: 20150709, end: 20150709
  3. TRASTUZUMAB [Suspect]
     Active Substance: TRASTUZUMAB
     Dosage: 420 MG, Q3W
     Route: 042
     Dates: start: 20150709, end: 20150709
  4. TRASTUZUMAB [Suspect]
     Active Substance: TRASTUZUMAB
     Dosage: 567 MG (LOADING DOSE) (TOTAL)
     Route: 041
     Dates: start: 20150616, end: 20150616
  5. TRASTUZUMAB [Suspect]
     Active Substance: TRASTUZUMAB
     Dosage: 420 MG (MAINTENANCE DOSE)
     Route: 042
     Dates: start: 20150709, end: 20150709
  6. TRASTUZUMAB [Suspect]
     Active Substance: TRASTUZUMAB
     Dosage: 1260 MG, 1/WEEK (420 MILLIGRAM)
     Route: 041
     Dates: start: 20150709, end: 20150709
  7. TRASTUZUMAB [Suspect]
     Active Substance: TRASTUZUMAB
     Dosage: 1260 MG, 1/WEEK (420 MILLIGRAM)
     Route: 041
     Dates: start: 20150609
  8. TRASTUZUMAB [Suspect]
     Active Substance: TRASTUZUMAB
     Dosage: 356
     Route: 065
  9. TRASTUZUMAB [Suspect]
     Active Substance: TRASTUZUMAB
     Dosage: LOADING DOSE. RECEIVED MAINTAINANCE DOSE 420 MG ON 09-JUL-2015
     Route: 065
     Dates: start: 20150709
  10. TRASTUZUMAB [Suspect]
     Active Substance: TRASTUZUMAB
     Dosage: LOADING DOSE
     Route: 042
     Dates: start: 20150616, end: 20150616
  11. TRASTUZUMAB [Suspect]
     Active Substance: TRASTUZUMAB
     Dosage: LOADING DOSE
     Route: 042
     Dates: start: 20150616, end: 20150616
  12. TRASTUZUMAB [Suspect]
     Active Substance: TRASTUZUMAB
     Dosage: 567 MILLIGRAM, TOTAL (LOADING DOSE) (PHARMACEUTICAL DOSAGE FORM: 230)
     Route: 041
     Dates: start: 20150616, end: 20150616
  13. TRASTUZUMAB [Suspect]
     Active Substance: TRASTUZUMAB
     Dosage: 420 MG, Q3W
     Route: 042
     Dates: start: 20150709, end: 20150709
  14. TRASTUZUMAB [Suspect]
     Active Substance: TRASTUZUMAB
     Dosage: 420 MG, BIW (420 MG, Q3W)
     Dates: start: 20150709, end: 20150709
  15. TRASTUZUMAB [Suspect]
     Active Substance: TRASTUZUMAB
     Dosage: 420 MG, BIW (420 MG, Q3W)
     Dates: start: 20150709
  16. TRASTUZUMAB [Suspect]
     Active Substance: TRASTUZUMAB
     Dosage: 567 MG, QD (LOADING DOSE); IN TOTAL
     Dates: start: 20150616, end: 20150616
  17. TRASTUZUMAB [Suspect]
     Active Substance: TRASTUZUMAB
     Dosage: 420 MG, TIW (MAINTAINANCE DOSE)
     Dates: start: 20150709, end: 20150709
  18. BENZYDAMINE HYDROCHLORIDE [Suspect]
     Active Substance: BENZYDAMINE HYDROCHLORIDE
     Indication: Mucosal inflammation
     Dosage: 15 ML/CM3, LIQUID MOUTHWASH; ;
     Route: 048
  19. BENZYDAMINE HYDROCHLORIDE [Suspect]
     Active Substance: BENZYDAMINE HYDROCHLORIDE
     Dosage: LIQUID MOUTHWASH 15 ML/CM3
     Route: 048
  20. DOCETAXEL [Suspect]
     Active Substance: DOCETAXEL
     Indication: Breast cancer metastatic
     Dosage: 130 MG, Q3W
     Route: 042
     Dates: start: 20150616, end: 20150616
  21. DOCETAXEL [Suspect]
     Active Substance: DOCETAXEL
     Dosage: 130 MG;
     Route: 042
     Dates: start: 20150616, end: 20150616
  22. DOCETAXEL [Suspect]
     Active Substance: DOCETAXEL
     Dosage: 130 MG, Q3W
     Route: 042
     Dates: start: 20150616, end: 20150709
  23. DOCETAXEL [Suspect]
     Active Substance: DOCETAXEL
     Dosage: 130 MG, QOW, 130 MG, BIW (130 MG, Q3W)
     Route: 042
     Dates: start: 20150709, end: 20150709
  24. DOCETAXEL [Suspect]
     Active Substance: DOCETAXEL
     Dosage: 260 MG, Q3W
     Route: 042
  25. DOCETAXEL [Suspect]
     Active Substance: DOCETAXEL
     Dosage: 390 MG, 1/WEEK (130 MILLIGRAM)
     Route: 041
     Dates: start: 20150709, end: 20150709
  26. DOCETAXEL [Suspect]
     Active Substance: DOCETAXEL
     Dosage: 260 MG, 1/WEEK (130 MILLIGRAM)
     Route: 041
     Dates: start: 20150616, end: 20150709
  27. DOCETAXEL [Suspect]
     Active Substance: DOCETAXEL
     Dosage: UNK, 1/WEEK
     Route: 041
     Dates: start: 20150709, end: 20150709
  28. DOCETAXEL [Suspect]
     Active Substance: DOCETAXEL
     Dosage: PHARMACEUTICAL FORM: 16
     Route: 042
  29. DOCETAXEL [Suspect]
     Active Substance: DOCETAXEL
     Dosage: 130 MG, BIW (130 MG, Q3W)
     Route: 042
     Dates: start: 20150709, end: 20150709
  30. DOCETAXEL [Suspect]
     Active Substance: DOCETAXEL
     Dosage: 130 MILLIGRAM, QD (DRUG STRUCTURE DOSAGE NUMBER: 130MG, DRUG INTERVAL DOSAGE UNIT NUMBER: 3WEEK) (PH
     Route: 042
     Dates: start: 20150709, end: 20150709
  31. DOCETAXEL [Suspect]
     Active Substance: DOCETAXEL
     Dosage: 130 MILLIGRAM, Q3WK  (DRUG STRUCTURE DOSAGE NUMBER: 130MG, DRUG INTERVAL DOSAGE UNIT NUMBER: 3WEEK)
     Route: 042
     Dates: start: 20150616, end: 20150709
  32. DOCETAXEL [Suspect]
     Active Substance: DOCETAXEL
     Dosage: 260 MILLIGRAM (DRUG STRUCTURE DOSAGE NUMBER: 130MG, DRUG INTERVAL DOSAGE UNIT NUMBER: 3WEEK) (PHARMA
     Route: 042
  33. DOCETAXEL [Suspect]
     Active Substance: DOCETAXEL
     Dosage: 130 MILLIGRAM, Q3WK (DRUG STRUCTURE DOSAGE NUMBER: 130MG, DRUG INTERVAL DOSAGE UNIT NUMBER: 3WEEK) (
     Route: 042
     Dates: start: 20150616, end: 20150616
  34. DOCETAXEL [Suspect]
     Active Substance: DOCETAXEL
     Dosage: 130 MILLIGRAM, Q2WK (DRUG STRUCTURE DOSAGE NUMBER: 130MG, DRUG INTERVAL DOSAGE UNIT NUMBER: 3WEEK) (
     Route: 042
     Dates: start: 20150709, end: 20150709
  35. DOCETAXEL [Suspect]
     Active Substance: DOCETAXEL
     Dosage: 130 MG, BIW (130 MG, Q3W)
     Dates: start: 20150709, end: 20150709
  36. DOCETAXEL [Suspect]
     Active Substance: DOCETAXEL
     Dosage: PHARMACEUTICAL FORM: 16
  37. IMODIUM [Suspect]
     Active Substance: LOPERAMIDE HYDROCHLORIDE
     Indication: Diarrhoea
     Dosage: 2 MG, AS NECESSARY
     Route: 048
  38. LOPERAMIDE [Suspect]
     Active Substance: LOPERAMIDE
     Indication: Diarrhoea
     Dosage: 2 MG, PRN; AS NECESSARY
     Route: 048
  39. PACLITAXEL [Suspect]
     Active Substance: PACLITAXEL
     Indication: Breast cancer metastatic
     Dosage: 420 MG, Q3W
     Route: 042
     Dates: start: 20150609, end: 20150609
  40. PACLITAXEL [Suspect]
     Active Substance: PACLITAXEL
     Dosage: 420 MG, Q3W
     Route: 042
     Dates: start: 20150609, end: 20150609
  41. PACLITAXEL [Suspect]
     Active Substance: PACLITAXEL
     Dosage: 567 MG, 1X; IN TOTAL
     Route: 041
     Dates: start: 20150616, end: 20150616
  42. PACLITAXEL [Suspect]
     Active Substance: PACLITAXEL
     Dosage: 340 MG, Q3W
     Route: 042
     Dates: start: 20150609, end: 20150609
  43. PACLITAXEL [Suspect]
     Active Substance: PACLITAXEL
     Dosage: 340 MG,Q3W
     Route: 042
     Dates: start: 20150709, end: 20150709
  44. PACLITAXEL [Suspect]
     Active Substance: PACLITAXEL
     Dosage: 340 MG,Q3W
     Route: 042
     Dates: start: 20150709, end: 20150709
  45. PACLITAXEL [Suspect]
     Active Substance: PACLITAXEL
     Dosage: 450 MG, Q3W
     Route: 042
     Dates: start: 20150730, end: 20150820
  46. PACLITAXEL [Suspect]
     Active Substance: PACLITAXEL
     Dosage: 1350 MG, Q3W, 450 MG, QW3 (LOADING DOSE)
     Route: 042
     Dates: start: 20150730, end: 20150730
  47. PACLITAXEL [Suspect]
     Active Substance: PACLITAXEL
     Dosage: 450 MG, BIW (450 MG, Q3W)
     Route: 042
     Dates: start: 20150730, end: 20150730
  48. PACLITAXEL [Suspect]
     Active Substance: PACLITAXEL
     Dosage: 450 MG, QW3 (LOADING DOSE)
     Route: 042
     Dates: start: 20150730, end: 20150730
  49. PACLITAXEL [Suspect]
     Active Substance: PACLITAXEL
     Dosage: 450 MG,3 (450 MG)
     Route: 042
     Dates: start: 20150730, end: 20150730
  50. PACLITAXEL [Suspect]
     Active Substance: PACLITAXEL
     Dosage: 340 MG,Q3W
     Route: 042
     Dates: start: 20150730, end: 20150730
  51. PACLITAXEL [Suspect]
     Active Substance: PACLITAXEL
     Dosage: 340 MG,Q3W (LOADING DOSE)
     Route: 042
     Dates: start: 20150820, end: 20150820
  52. PACLITAXEL [Suspect]
     Active Substance: PACLITAXEL
     Dosage: 450 MG, Q3W
     Route: 042
     Dates: start: 20150820, end: 20150820
  53. PACLITAXEL [Suspect]
     Active Substance: PACLITAXEL
     Dosage: LOADING DOSE (450 MG)
     Route: 042
     Dates: start: 20150820, end: 20150820
  54. PACLITAXEL [Suspect]
     Active Substance: PACLITAXEL
     Dosage: 340 MG,Q3W
     Route: 042
     Dates: start: 20150910, end: 20151022
  55. PACLITAXEL [Suspect]
     Active Substance: PACLITAXEL
     Dosage: 340 MG, Q3W
     Route: 042
     Dates: start: 20150910, end: 20150910
  56. PACLITAXEL [Suspect]
     Active Substance: PACLITAXEL
     Dosage: 340 MG, Q3W
     Route: 042
     Dates: start: 20151022, end: 20151022
  57. PACLITAXEL [Suspect]
     Active Substance: PACLITAXEL
     Dosage: LOADING DOSE
     Route: 042
     Dates: start: 20150730, end: 20150820
  58. PACLITAXEL [Suspect]
     Active Substance: PACLITAXEL
     Dosage: 567 MG, 3/WEEK
     Route: 041
     Dates: start: 20150616
  59. PACLITAXEL [Suspect]
     Active Substance: PACLITAXEL
     Dosage: 340 MG, 3/WEEK
     Route: 042
     Dates: start: 20151022, end: 20151022
  60. PACLITAXEL [Suspect]
     Active Substance: PACLITAXEL
     Dosage: 450 MG, 3/WEEK
     Route: 042
     Dates: start: 20150820, end: 20150820
  61. PACLITAXEL [Suspect]
     Active Substance: PACLITAXEL
     Dosage: LOADING DOSE 450 MG FROM 30-JUL-2015 TO 20-AUG-2015 CUMULATIVE:857.1429 MG
     Route: 042
     Dates: start: 20150910, end: 20151022
  62. PACLITAXEL [Suspect]
     Active Substance: PACLITAXEL
     Dosage: 340 MG, 3/WEEK
     Route: 042
     Dates: start: 20150820, end: 20150820
  63. PACLITAXEL [Suspect]
     Active Substance: PACLITAXEL
     Dosage: 450 MG,Q3W
     Route: 042
     Dates: start: 20150730, end: 20150730
  64. PACLITAXEL [Suspect]
     Active Substance: PACLITAXEL
     Dosage: 420 MILLIGRAM, Q3WK (CUMULATIVE DOSE TO FIRST REACTION: 2039.535MG) (PHARMACEUTICAL DOSAGE FORM: 230
     Route: 042
     Dates: start: 20150709, end: 20150709
  65. PACLITAXEL [Suspect]
     Active Substance: PACLITAXEL
     Dosage: 1350 MILLIGRAM, QWK (CUMULATIVE DOSE TO FIRST REACTION: 2039.535MG) (PHARMACEUTICAL DOSAGE FORM: 230
     Route: 042
     Dates: start: 20150730, end: 20150730
  66. PACLITAXEL [Suspect]
     Active Substance: PACLITAXEL
     Dosage: 340 MILLIGRAM, Q3WK (CUMULATIVE DOSE TO FIRST REACTION: 2039.535MG) (PHARMACEUTICAL DOSAGE FORM: 230
     Route: 042
     Dates: start: 20150820, end: 20150820
  67. PACLITAXEL [Suspect]
     Active Substance: PACLITAXEL
     Dosage: 450 MILLIGRAM, Q2WK (CUMULATIVE DOSE TO FIRST REACTION: 2039.535MG) (PHARMACEUTICAL DOSAGE FORM: 230
     Route: 042
     Dates: start: 20150730, end: 20150730
  68. PACLITAXEL [Suspect]
     Active Substance: PACLITAXEL
     Dosage: 340 MILLIGRAM, Q3WK (CUMULATIVE DOSE TO FIRST REACTION: 2039.535MG) (PHARMACEUTICAL DOSAGE FORM: 230
     Route: 042
     Dates: start: 20151022, end: 20151022
  69. PACLITAXEL [Suspect]
     Active Substance: PACLITAXEL
     Dosage: 567 MILLIGRAM TOTAL (CUMULATIVE DOSE TO FIRST REACTION: 2039.535MG) (PHARMACEUTICAL DOSAGE FORM: 230
     Route: 042
     Dates: start: 20150616, end: 20150616
  70. PACLITAXEL [Suspect]
     Active Substance: PACLITAXEL
     Dosage: 450 MILLIGRAM, Q3WK (CUMULATIVE DOSE TO FIRST REACTION: 2039.535MG) (PHARMACEUTICAL DOSAGE FORM: 230
     Route: 042
     Dates: start: 20150730, end: 20150730
  71. PACLITAXEL [Suspect]
     Active Substance: PACLITAXEL
     Dosage: 450 MILLIGRAM, Q3WK (CUMULATIVE DOSE TO FIRST REACTION: 2039.535MG) (PHARMACEUTICAL DOSAGE FORM: 230
     Route: 042
     Dates: start: 20150820, end: 20150820
  72. PACLITAXEL [Suspect]
     Active Substance: PACLITAXEL
     Dosage: 340 MILLIGRAM, Q3WK (CUMULATIVE DOSE TO FIRST REACTION: 2039.535MG) (PHARMACEUTICAL DOSAGE FORM: 230
     Route: 042
     Dates: start: 20150910, end: 20150910
  73. PACLITAXEL [Suspect]
     Active Substance: PACLITAXEL
     Dosage: 450 MILLIGRAM, Q3WK (CUMULATIVE DOSE TO FIRST REACTION: 2039.535MG) (PHARMACEUTICAL DOSAGE FORM: 230
     Route: 042
     Dates: start: 20150820, end: 20150820
  74. PACLITAXEL [Suspect]
     Active Substance: PACLITAXEL
     Dosage: LOADING DOSE
     Dates: start: 20150730, end: 20150820
  75. PACLITAXEL [Suspect]
     Active Substance: PACLITAXEL
     Dosage: 567 MG, 3/WEEK
     Dates: start: 20150616
  76. PACLITAXEL [Suspect]
     Active Substance: PACLITAXEL
     Dosage: LOADING DOSE 450 MG FROM 30-JUL-2015 TO 20-AUG-2015 CUMULATIVE:857.1429 MG
     Dates: start: 20150910, end: 20151022
  77. PACLITAXEL [Suspect]
     Active Substance: PACLITAXEL
     Dosage: 340 MG,Q3W
     Dates: start: 20150910, end: 20150910
  78. PACLITAXEL [Suspect]
     Active Substance: PACLITAXEL
     Dosage: 450 MG, Q3W
     Dates: start: 20150730, end: 20150730
  79. PACLITAXEL [Suspect]
     Active Substance: PACLITAXEL
     Dosage: 420 MG, Q3W
     Dates: start: 20150609, end: 20150609
  80. PERTUZUMAB [Suspect]
     Active Substance: PERTUZUMAB
     Indication: Breast cancer metastatic
     Dosage: 840 MG, TOTAL; IN TOTAL; 1 TRIMESTER
     Route: 042
     Dates: start: 20150615, end: 20150615
  81. PERTUZUMAB [Suspect]
     Active Substance: PERTUZUMAB
     Dosage: 840 MG, Q3W
     Route: 042
     Dates: start: 20150615, end: 20150615
  82. PERTUZUMAB [Suspect]
     Active Substance: PERTUZUMAB
     Dosage: 567 MG EVERY 3 WEEK (LOADING DOSE: DRUG STRUCTURE DOSAGE NUMBER: 840MG DRUG INTERVAL DOSAGE UNIT NUM
     Route: 041
     Dates: start: 20150616
  83. PERTUZUMAB [Suspect]
     Active Substance: PERTUZUMAB
     Dosage: 567 MG, TOTAL; IN TOTAL
     Route: 041
     Dates: start: 20150616
  84. PERTUZUMAB [Suspect]
     Active Substance: PERTUZUMAB
     Dosage: 420 MILLIGRAM, Q2WK (LOADING DOSE: DRUG STRUCTURE DOSAGE NUMBER: 840MG DRUG INTERVAL DOSAGE UNIT NUM
     Route: 042
     Dates: start: 20150709
  85. PERTUZUMAB [Suspect]
     Active Substance: PERTUZUMAB
     Dosage: 420 MG, Q3W
     Route: 042
     Dates: start: 20150709, end: 20150709
  86. PERTUZUMAB [Suspect]
     Active Substance: PERTUZUMAB
     Dosage: MAINTAINACE DOSE
     Route: 042
     Dates: start: 20150709, end: 20150709
  87. PERTUZUMAB [Suspect]
     Active Substance: PERTUZUMAB
     Dosage: 420 MG, Q3W (MAINTAINANCE DOSE)
     Route: 042
     Dates: start: 20150709
  88. PERTUZUMAB [Suspect]
     Active Substance: PERTUZUMAB
     Dosage: 840 MG, 1/WEEK (420 MILLIGRAM)
     Route: 041
     Dates: start: 20150615, end: 20150615
  89. PERTUZUMAB [Suspect]
     Active Substance: PERTUZUMAB
     Dosage: 420 MG, 1/WEEK
     Route: 041
     Dates: start: 20150709, end: 20150709
  90. PERTUZUMAB [Suspect]
     Active Substance: PERTUZUMAB
     Dosage: 10 MG, QD
     Route: 041
     Dates: start: 20150907, end: 20150907
  91. PERTUZUMAB [Suspect]
     Active Substance: PERTUZUMAB
     Dosage: 567 MG, 1/WEEK
     Route: 041
     Dates: start: 20150616, end: 20150616
  92. PERTUZUMAB [Suspect]
     Active Substance: PERTUZUMAB
     Dosage: MAINTAINACE DOSE. ALSO RECEIVED 840 MG FROM 15-JUN-2015 TO 15-JUN-2015 1 DAYS
     Route: 042
     Dates: start: 20150709
  93. PERTUZUMAB [Suspect]
     Active Substance: PERTUZUMAB
     Dosage: LOADING DOSE
     Route: 042
     Dates: start: 20150615, end: 20150615
  94. PERTUZUMAB [Suspect]
     Active Substance: PERTUZUMAB
     Dosage: 840MG (DRUG INTERVAL DOSAGE UNIT NUMBER: 1 TOTAL) (PHARMACEUTICAL DOSE FORM: 230)
     Route: 042
     Dates: start: 20150615, end: 20150615
  95. PERTUZUMAB [Suspect]
     Active Substance: PERTUZUMAB
     Dosage: LOADING DOSE
     Dates: start: 20150615, end: 20150615
  96. PERTUZUMAB [Suspect]
     Active Substance: PERTUZUMAB
     Dosage: MAINTAINACE DOSE. ALSO RECEIVED 840 MG FROM 15-JUN-2015 TO 15-JUN-2015 1 DAYS
     Dates: start: 20150709
  97. HERCEPTIN [Suspect]
     Active Substance: TRASTUZUMAB
     Indication: Breast cancer metastatic
     Dosage: 567 MG, QD FOR LOADING DOSE; DRUG STRUCTURE DOSAGE NUMBER: 567MG, DRUG INTERVAL DOSAGE UNIT NUMBER:
     Route: 042
     Dates: start: 20150616, end: 20150616
  98. HERCEPTIN [Suspect]
     Active Substance: TRASTUZUMAB
     Dosage: 420 MG, Q3W
     Route: 042
     Dates: start: 20150709, end: 20150709
  99. HERCEPTIN [Suspect]
     Active Substance: TRASTUZUMAB
     Dosage: 420 MG, Q3W (MAINTAINANCE DOSE)
     Route: 042
     Dates: start: 20150709
  100. HERCEPTIN [Suspect]
     Active Substance: TRASTUZUMAB
     Dosage: 420 MG, BIW (420 MG, Q3W)
     Route: 042
     Dates: start: 20150709, end: 20150709
  101. HERCEPTIN [Suspect]
     Active Substance: TRASTUZUMAB
     Dosage: 420 MILLIGRAM, Q3WK (FOR LOADING DOSE; DRUG STRUCTURE DOSAGE NUMBER: 567MG, DRUG INTERVAL DOSAGE UNI
     Route: 042
     Dates: start: 20150709, end: 20150709
  102. HERCEPTIN [Suspect]
     Active Substance: TRASTUZUMAB
     Dosage: 420 MILLIGRAM, Q3WK (FOR LOADING DOSE; DRUG STRUCTURE DOSAGE NUMBER: 567MG, DRUG INTERVAL DOSAGE UNI
     Route: 042
     Dates: start: 20150709
  103. ABRAXANE [Suspect]
     Active Substance: PACLITAXEL
     Indication: Breast cancer metastatic
     Dosage: 390 MG, 1/WEEK (130 MILLIGRAM; PHARMACEUTICAL DOSE FORM: 120)
     Route: 041
     Dates: start: 20160709, end: 20160709
  104. ABRAXANE [Suspect]
     Active Substance: PACLITAXEL
     Dosage: 1020 MG, 1/WEEK (340 MILLIGRAM; PHARMACEUTICAL DOSE FORM: 124)
     Route: 041
     Dates: start: 20150730, end: 20150820
  105. ABRAXANE [Suspect]
     Active Substance: PACLITAXEL
     Dosage: 1020 MG, 1/WEEK (340 MILLIGRAM; PHARMACEUTICAL DOSE FORM: 120)
     Route: 041
     Dates: start: 20150820, end: 20150820
  106. ABRAXANE [Suspect]
     Active Substance: PACLITAXEL
     Dosage: 1020 MG, 1/WEEK (340 MILLIGRAM; PHARMACEUTICAL DOSE FORM: 124)
     Route: 041
     Dates: start: 20150730, end: 20150730
  107. ABRAXANE [Suspect]
     Active Substance: PACLITAXEL
     Dosage: 2520 MG, 1/WEEK (840 MILLIGRAM; PHARMACEUTICAL DOSE FORM: 124)
     Route: 041
     Dates: start: 20150615, end: 20150615
  108. ABRAXANE [Suspect]
     Active Substance: PACLITAXEL
     Dosage: 1020 MG, 1/WEEK (340 MILLIGRAM; PHARMACEUTICAL DOSE FORM: 120)
     Route: 041
     Dates: start: 20151022, end: 20151022
  109. ABRAXANE [Suspect]
     Active Substance: PACLITAXEL
     Dosage: 1020 MG, 1/WEEK (340 MILLIGRAM; PHARMACEUTICAL DOSE FORM: 120)
     Route: 041
     Dates: start: 20150910, end: 20150910
  110. ABRAXANE [Suspect]
     Active Substance: PACLITAXEL
     Dosage: 1701 MG, 1/WEEK (567 MILLIGRAM; PHARMACEUTICAL DOSE FORM: 120)
     Route: 041
     Dates: start: 20150616, end: 20150616
  111. IMODIUM [Suspect]
     Active Substance: LOPERAMIDE HYDROCHLORIDE
     Indication: Diarrhoea
     Dosage: 2 MG, PRN; AS NECESSARY (PHARMACEUTICAL DOSAGE FORM: 5)
     Route: 048
  112. PACLITAXEL [Suspect]
     Active Substance: PACLITAXEL
     Indication: Breast cancer metastatic
     Dosage: 340 MILLIGRAM Q3WK (CUMULATIVE DOSE: 1473.334MG)
     Route: 042
     Dates: start: 20150609, end: 20150609
  113. PACLITAXEL [Suspect]
     Active Substance: PACLITAXEL
     Dosage: 450 MILLIGRAM Q3WK (LOADING DOSE)
     Route: 042
     Dates: start: 20150730, end: 20150730
  114. PACLITAXEL [Suspect]
     Active Substance: PACLITAXEL
     Dosage: 340 MILLIGRAM, Q3WK  (CUMULATIVE DOSE: 307.61905 MG)
     Route: 042
     Dates: start: 20150820, end: 20150820
  115. PACLITAXEL [Suspect]
     Active Substance: PACLITAXEL
     Dosage: 340 MILLIGRAM, Q3WK (CUMULATIVE DOSE: 32.38095 MG)
     Route: 042
     Dates: start: 20150910
  116. PACLITAXEL [Suspect]
     Active Substance: PACLITAXEL
     Dosage: 340 MILLIGRAM Q3WK  (CUMULATIVE DOSE: 712.381 MG)
     Route: 042
     Dates: start: 20151022
  117. CHLORPHENIRAMINE MALEATE [Concomitant]
     Active Substance: CHLORPHENIRAMINE MALEATE
     Indication: Product used for unknown indication
     Dosage: 10 MILLIGRAM, UNK
     Route: 042
     Dates: start: 20150709, end: 20150709
  118. CHLORPHENIRAMINE MALEATE [Concomitant]
     Active Substance: CHLORPHENIRAMINE MALEATE
     Dosage: 10 MG, QD (PHARMACEUTICAL DOSE FORM: 120)
     Route: 041
     Dates: start: 20150709, end: 20150709
  119. AMOXICILLIN\CLAVULANATE POTASSIUM [Concomitant]
     Active Substance: AMOXICILLIN\CLAVULANATE POTASSIUM
     Indication: Cough
     Dosage: UNK (COUGH WITH YELLOW SPUTUM)
     Route: 048
     Dates: start: 20180110, end: 20180117
  120. AMOXICILLIN\CLAVULANATE POTASSIUM [Concomitant]
     Active Substance: AMOXICILLIN\CLAVULANATE POTASSIUM
     Indication: Productive cough
     Dosage: UNK (COUGH WITH YELLOW SPUTUM)
     Dates: start: 20180110, end: 20180117
  121. COCODAMOL [Concomitant]
     Active Substance: ACETAMINOPHEN\CODEINE PHOSPHATE
     Indication: Product used for unknown indication
     Dosage: 2000 MG, QD (PHARMACEUTICAL DOSE FORM: 245)
     Route: 048
  122. COCODAMOL [Concomitant]
     Active Substance: ACETAMINOPHEN\CODEINE PHOSPHATE
     Dosage: 500 MG, QD (PHARMACEUTICAL DOSE FORM: 245)
     Route: 048
  123. DOMPERIDONE [Concomitant]
     Active Substance: DOMPERIDONE
     Indication: Product used for unknown indication
     Dosage: 10 MG, QD (30 MILLIGRAM, PHARMACEUTICAL DOSE FORM: 245)
     Route: 048
     Dates: start: 20150709
  124. DOMPERIDONE [Concomitant]
     Active Substance: DOMPERIDONE
     Dosage: 30 MG, QD (PHARMACEUTICAL DOSE FORM: 245)
     Route: 048
     Dates: start: 20190709
  125. DOMPERIDONE [Concomitant]
     Active Substance: DOMPERIDONE
     Dosage: 10 MG,QD
     Dates: start: 20150709
  126. DOMPERIDONE [Concomitant]
     Active Substance: DOMPERIDONE
     Dosage: 30 MG, QD
     Dates: start: 20190709
  127. HYDROCORTISONE [Concomitant]
     Active Substance: HYDROCORTISONE
     Indication: Product used for unknown indication
     Dosage: 100 MG, 1X; IN TOTAL
     Route: 042
     Dates: start: 20150709, end: 20150709
  128. HYDROCORTISONE [Concomitant]
     Active Substance: HYDROCORTISONE
     Dosage: 100 MG, QD
     Route: 041
     Dates: start: 20150709, end: 20150709
  129. METFORMIN [Concomitant]
     Active Substance: METFORMIN HYDROCHLORIDE
     Indication: Diabetes mellitus
     Dosage: 2 GRAM, QD (PHARMACEUTICAL DOSE FORM: 245)
     Route: 048
  130. METFORMIN [Concomitant]
     Active Substance: METFORMIN HYDROCHLORIDE
     Dosage: 1 GRAM, QD (PHARMACEUTICAL DOSE FORM: 245)
     Route: 048
  131. METFORMIN [Concomitant]
     Active Substance: METFORMIN HYDROCHLORIDE
     Dosage: 2 G, QD
  132. METFORMIN [Concomitant]
     Active Substance: METFORMIN HYDROCHLORIDE
     Dosage: 1 G,QD
  133. TRAMADOL [Concomitant]
     Active Substance: TRAMADOL
     Indication: Pain
     Dosage: 100 MG, QD (PHARMACEUTICAL DOSE FORM: 245)
     Route: 048
  134. TRAMADOL [Concomitant]
     Active Substance: TRAMADOL
     Dosage: 50 MG, QD (PHARMACEUTICAL DOSE FORM: 245)
     Route: 048
  135. IMODIUM [Concomitant]
     Active Substance: LOPERAMIDE HYDROCHLORIDE
     Indication: Diarrhoea
     Dosage: MG, PRN; AS NECESSARY
     Route: 048
  136. CODEINE PHOSPHATE [Concomitant]
     Active Substance: CODEINE PHOSPHATE
     Indication: Product used for unknown indication
     Dosage: 500 MILLIGRAM, QD (PHARMACEUTICAL DOSE FORM: 245)
     Route: 048
  137. CODEINE PHOSPHATE [Concomitant]
     Active Substance: CODEINE PHOSPHATE
     Dosage: UNK
     Route: 065
  138. CODEINE PHOSPHATE [Concomitant]
     Active Substance: CODEINE PHOSPHATE
     Dosage: 2000 MG, QD
     Route: 048

REACTIONS (10)
  - Chest pain [Not Recovered/Not Resolved]
  - Bone pain [Not Recovered/Not Resolved]
  - Swelling [Not Recovered/Not Resolved]
  - Mucosal inflammation [Recovered/Resolved]
  - Neuropathy peripheral [Not Recovered/Not Resolved]
  - Febrile neutropenia [Recovered/Resolved]
  - Diarrhoea [Recovered/Resolved]
  - Fatigue [Recovered/Resolved]
  - Vomiting [Not Recovered/Not Resolved]
  - Nausea [Not Recovered/Not Resolved]

NARRATIVE: CASE EVENT DATE: 20150908
